FAERS Safety Report 8059690-7 (Version None)
Quarter: 2012Q1

REPORT INFORMATION
  Report Type: 
  Country: None (occurrence: None)
  Receive Date: 20120120
  Receipt Date: 20120113
  Transmission Date: 20120608
  Serious: Yes (Other)
  Sender: FDA-Public Use
  Company Number: PHHY2012CZ003639

PATIENT
  Age: 53 Year
  Sex: Male

DRUGS (3)
  1. IMATINIB MESYLATE [Suspect]
     Indication: CHRONIC MYELOID LEUKAEMIA
     Dosage: UNK
  2. INTERFERON [Suspect]
     Indication: CHRONIC MYELOID LEUKAEMIA
     Dosage: UNK
  3. HYDROXYUREA [Suspect]
     Indication: CHRONIC MYELOID LEUKAEMIA
     Dosage: UNK

REACTIONS (2)
  - NEOPLASM MALIGNANT [None]
  - CARCINOID TUMOUR OF THE SMALL BOWEL [None]
